FAERS Safety Report 13693732 (Version 3)
Quarter: 2017Q4

REPORT INFORMATION
  Report Type: Spontaneous
  Country: US (occurrence: US)
  Receive Date: 20170627
  Receipt Date: 20171124
  Transmission Date: 20180320
  Serious: Yes (Death, Hospitalization, Other)
  Sender: FDA-Public Use
  Company Number: US-JNJFOC-20170623407

PATIENT
  Age: 87 Year
  Sex: Female
  Weight: 52 kg

DRUGS (12)
  1. IMBRUVICA [Suspect]
     Active Substance: IBRUTINIB
     Indication: WALDENSTROM^S MACROGLOBULINAEMIA
     Route: 048
     Dates: start: 20160520, end: 2017
  2. IMBRUVICA [Suspect]
     Active Substance: IBRUTINIB
     Indication: WALDENSTROM^S MACROGLOBULINAEMIA
     Route: 048
  3. FOSAMAX [Concomitant]
     Active Substance: ALENDRONATE SODIUM
     Dosage: 5 MG, UNK
  4. PRESERVISION AREDS [Concomitant]
     Active Substance: MINERALS\VITAMINS
  5. DITROPAN [Concomitant]
     Active Substance: OXYBUTYNIN CHLORIDE
  6. CALAN [Concomitant]
     Active Substance: VERAPAMIL HYDROCHLORIDE
     Dosage: 120 MG, QD
  7. VITAMIN D3 [Concomitant]
     Active Substance: CHOLECALCIFEROL
  8. COMPAZINE [Concomitant]
     Active Substance: PROCHLORPERAZINE MALEATE
  9. NORCO [Concomitant]
     Active Substance: ACETAMINOPHEN\HYDROCODONE BITARTRATE
  10. IBUPROFEN. [Concomitant]
     Active Substance: IBUPROFEN
  11. VITAMIN D [Concomitant]
     Active Substance: CHOLECALCIFEROL
     Dosage: 1000 UNK, UNK
     Route: 065
  12. FOSAMAX [Concomitant]
     Active Substance: ALENDRONATE SODIUM
     Dosage: 10 UNK, WEEKLY

REACTIONS (13)
  - Chronic kidney disease [Fatal]
  - Osteoarthritis [Unknown]
  - Foot fracture [Unknown]
  - Urinary tract infection [Fatal]
  - Cystitis [Unknown]
  - Clostridium difficile colitis [Unknown]
  - Product use issue [Unknown]
  - Fatigue [Unknown]
  - Off label use [Unknown]
  - Sepsis [Fatal]
  - Limb injury [Unknown]
  - Asthenia [Unknown]
  - Colitis [Fatal]

NARRATIVE: CASE EVENT DATE: 20160520
